FAERS Safety Report 7892206-4 (Version None)
Quarter: 2011Q4

REPORT INFORMATION
  Report Type: 
  Country: None (occurrence: None)
  Receive Date: 20111104
  Receipt Date: 20111025
  Transmission Date: 20120403
  Serious: Yes (Hospitalization)
  Sender: FDA-Public Use
  Company Number: US-ASTRAZENECA-2011SE64746

PATIENT
  Age: 71 Year
  Sex: Male
  Weight: 86 kg

DRUGS (13)
  1. BAPINEUZUMAB,PLACEBO [Suspect]
     Route: 065
     Dates: start: 20110131, end: 20110131
  2. RANITIDINE [Concomitant]
     Indication: GASTROOESOPHAGEAL REFLUX DISEASE
     Dates: start: 20080101
  3. GALANTAMINE HYDROBROMIDE [Concomitant]
     Indication: CHOLINESTERASE INHIBITION
     Dates: start: 20060101
  4. ASPIRIN [Concomitant]
     Indication: ARTHRITIS
     Dates: start: 20050101
  5. BAPINEUZUMAB,PLACEBO [Suspect]
     Route: 065
     Dates: start: 20100510, end: 20100510
  6. BAPINEUZUMAB,PLACEBO [Suspect]
     Route: 065
     Dates: start: 20100810, end: 20100810
  7. NAPROXEN [Concomitant]
     Indication: OSTEOARTHRITIS
     Dates: start: 20050101
  8. BAPINEUZUMAB,PLACEBO [Suspect]
     Route: 065
     Dates: start: 20100212, end: 20100212
  9. BAPINEUZUMAB,PLACEBO [Suspect]
     Indication: DEMENTIA ALZHEIMER'S TYPE
     Route: 065
     Dates: start: 20091106, end: 20091106
  10. NAMENDA [Concomitant]
     Dates: start: 20040101
  11. SIMVASTATIN [Concomitant]
     Indication: HYPERLIPIDAEMIA
     Dates: start: 20060101
  12. SEROQUEL [Suspect]
     Indication: ANXIETY
     Route: 048
     Dates: start: 20110315, end: 20110407
  13. BAPINEUZUMAB,PLACEBO [Suspect]
     Route: 065
     Dates: start: 20101102, end: 20101102

REACTIONS (4)
  - ABNORMAL BEHAVIOUR [None]
  - AGITATION [None]
  - HYPERTENSION [None]
  - AGGRESSION [None]
